FAERS Safety Report 6091265-1 (Version None)
Quarter: 2009Q1

REPORT INFORMATION
  Report Type: 
  Country: None (occurrence: None)
  Receive Date: 20090220
  Receipt Date: 20090220
  Transmission Date: 20090719
  Serious: Yes (Death)
  Sender: FDA-Public Use
  Company Number: None

PATIENT
  Age: 70 Year
  Sex: Male
  Weight: 86.1834 kg

DRUGS (1)
  1. COCHICINE 0.6MG [Suspect]
     Indication: GOUT
     Dosage: 0.6MG QOD PO
     Route: 048
     Dates: start: 20090115, end: 20090122

REACTIONS (6)
  - FACIAL BONES FRACTURE [None]
  - FALL [None]
  - GENERAL PHYSICAL HEALTH DETERIORATION [None]
  - RENAL FAILURE ACUTE [None]
  - SYNCOPE [None]
  - UNRESPONSIVE TO STIMULI [None]
